FAERS Safety Report 19179332 (Version 2)
Quarter: 2021Q2

REPORT INFORMATION
  Report Type: Spontaneous
  Country: GB (occurrence: GB)
  Receive Date: 20210426
  Receipt Date: 20210521
  Transmission Date: 20210717
  Serious: Yes (Other)
  Sender: FDA-Public Use
  Company Number: GB-GLAXOSMITHKLINE-GB2021090607

PATIENT
  Age: 40 Year
  Sex: Female
  Weight: 71 kg

DRUGS (3)
  1. ACTIFED (PSEUDOEPHEDRINE HYDROCHLORIDE+TRIPROLIDINE HYDROCHLORIDE) [Concomitant]
     Indication: SINUSITIS
     Dosage: UNK
     Route: 065
  2. BECLOMETHASONE [Suspect]
     Active Substance: BECLOMETHASONE
     Indication: PRODUCT USED FOR UNKNOWN INDICATION
     Dosage: UNK
     Route: 065
  3. PFIZER?BIONTECH COVID?19 VACCINE [Suspect]
     Active Substance: TOZINAMERAN
     Indication: PRODUCT USED FOR UNKNOWN INDICATION
     Dosage: 1 DF, (DOSE 1)
     Route: 065
     Dates: start: 20210412, end: 20210412

REACTIONS (4)
  - Peripheral swelling [Not Recovered/Not Resolved]
  - Pruritus [Recovering/Resolving]
  - Erythema [Unknown]
  - Skin discolouration [Recovering/Resolving]

NARRATIVE: CASE EVENT DATE: 20210420
